FAERS Safety Report 5398930-X (Version None)
Quarter: 2007Q3

REPORT INFORMATION
  Report Type: 
  Country: None (occurrence: None)
  Receive Date: 20070727
  Receipt Date: 20070705
  Transmission Date: 20080115
  Serious: Yes (Other)
  Sender: FDA-Public Use
  Company Number: US-JNJFOC-20060401826

PATIENT
  Sex: Female
  Weight: 73.48 kg

DRUGS (10)
  1. RISPERDAL [Suspect]
  2. RISPERDAL [Suspect]
     Indication: PSYCHOTIC DISORDER
  3. SEROQUEL [Suspect]
     Indication: DRUG USE FOR UNKNOWN INDICATION
  4. LITHIUM CARBONATE [Concomitant]
  5. ATIVAN [Concomitant]
  6. PAXIL [Concomitant]
  7. ESTRADERM [Concomitant]
  8. PROVERA [Concomitant]
  9. MUTIVITAMIN [Concomitant]
  10. CALCIUM CHLORIDE [Concomitant]

REACTIONS (3)
  - DIABETIC NEPHROPATHY [None]
  - TYPE 2 DIABETES MELLITUS [None]
  - WEIGHT INCREASED [None]
